FAERS Safety Report 19788611 (Version 2)
Quarter: 2021Q4

REPORT INFORMATION
  Report Type: Spontaneous
  Country: US (occurrence: US)
  Receive Date: 20210904
  Receipt Date: 20211103
  Transmission Date: 20220303
  Serious: Yes (Hospitalization, Other)
  Sender: FDA-Public Use
  Company Number: US-AMGEN-USASP2021133817

PATIENT
  Age: 79 Year
  Sex: Male

DRUGS (2)
  1. REPATHA [Suspect]
     Active Substance: EVOLOCUMAB
     Indication: Blood cholesterol increased
     Dosage: 140 MILLIGRAM, Q2WK
     Route: 065
     Dates: start: 202010
  2. REPATHA [Suspect]
     Active Substance: EVOLOCUMAB
     Indication: Hypercholesterolaemia

REACTIONS (7)
  - Myocardial infarction [Unknown]
  - Pneumonia aspiration [Unknown]
  - Duodenal ulcer haemorrhage [Unknown]
  - Intestinal obstruction [Unknown]
  - Mental impairment [Unknown]
  - Blood pressure increased [Unknown]
  - Sensory loss [Unknown]

NARRATIVE: CASE EVENT DATE: 20210101
